FAERS Safety Report 13426049 (Version 1)
Quarter: 2017Q2

REPORT INFORMATION
  Report Type: Spontaneous
  Country: US (occurrence: US)
  Receive Date: 20170410
  Receipt Date: 20170410
  Transmission Date: 20170830
  Serious: No
  Sender: FDA-Public Use
  Company Number: None

PATIENT
  Age: 23 Year
  Sex: Female
  Weight: 54 kg

DRUGS (2)
  1. PROMETHAZINE [Suspect]
     Active Substance: PROMETHAZINE\PROMETHAZINE HYDROCHLORIDE
     Indication: NAUSEA
     Dosage: ?          OTHER FREQUENCY:NOW;?
     Route: 030
     Dates: start: 20170410, end: 20170410
  2. PROMETHAZINE [Suspect]
     Active Substance: PROMETHAZINE\PROMETHAZINE HYDROCHLORIDE
     Indication: VOMITING
     Dosage: ?          OTHER FREQUENCY:NOW;?
     Route: 030
     Dates: start: 20170410, end: 20170410

REACTIONS (3)
  - Laceration [None]
  - Injury associated with device [None]
  - Device breakage [None]

NARRATIVE: CASE EVENT DATE: 20170410
